FAERS Safety Report 4314556-0 (Version None)
Quarter: 2004Q1

REPORT INFORMATION
  Report Type: 
  Country: None (occurrence: None)
  Receive Date: 20040309
  Receipt Date: 20040109
  Transmission Date: 20041129
  Serious: Yes (Hospitalization)
  Sender: FDA-Public Use
  Company Number: WAES 0401FRA00027

PATIENT
  Age: 79 Year
  Sex: Female
  Weight: 72 kg

DRUGS (5)
  1. FUROSEMIDE [Concomitant]
     Route: 048
  2. GLICLAZIDE [Concomitant]
     Indication: DIABETES MELLITUS NON-INSULIN-DEPENDENT
     Route: 048
  3. NITROGLYCERIN [Concomitant]
     Route: 048
  4. PROPRANOLOL HYDROCHLORIDE [Concomitant]
     Indication: HYPERTENSION
     Route: 048
  5. VIOXX [Suspect]
     Indication: OSTEOARTHRITIS
     Route: 048
     Dates: start: 20011115, end: 20020706

REACTIONS (2)
  - HAEMOGLOBIN DECREASED [None]
  - OESOPHAGEAL VARICES HAEMORRHAGE [None]
